FAERS Safety Report 8334191-7 (Version None)
Quarter: 2012Q2

REPORT INFORMATION
  Report Type: 
  Country: None (occurrence: None)
  Receive Date: 20120503
  Receipt Date: 20120426
  Transmission Date: 20120825
  Serious: Yes (Hospitalization)
  Sender: FDA-Public Use
  Company Number: US-GLAXOSMITHKLINE-A0803841A

PATIENT
  Age: 61 Year
  Sex: Male
  Weight: 93.6 kg

DRUGS (8)
  1. METFORMIN HCL [Concomitant]
  2. LISINOPRIL [Concomitant]
  3. AVANDIA [Suspect]
     Indication: TYPE 2 DIABETES MELLITUS
     Dosage: 4MG PER DAY
     Route: 048
     Dates: start: 20060120, end: 20080101
  4. METOPROLOL TARTRATE [Concomitant]
  5. SIMVASTATIN [Concomitant]
  6. SERTRALINE HYDROCHLORIDE [Concomitant]
  7. GEMFIBROZIL [Concomitant]
  8. BUPROPION HCL [Concomitant]

REACTIONS (4)
  - IMPLANTABLE DEFIBRILLATOR INSERTION [None]
  - CARDIAC FAILURE CONGESTIVE [None]
  - ISCHAEMIC CARDIOMYOPATHY [None]
  - MYOCARDIAL INFARCTION [None]
